FAERS Safety Report 15555933 (Version 1)
Quarter: 2018Q4

REPORT INFORMATION
  Report Type: Spontaneous
  Country: FR (occurrence: FR)
  Receive Date: 20181026
  Receipt Date: 20181026
  Transmission Date: 20190205
  Serious: Yes (Other)
  Sender: FDA-Public Use
  Company Number: FR-PROVELL PHARMACEUTICALS-2058091

PATIENT
  Age: 33 Year
  Sex: Female
  Weight: 62 kg

DRUGS (3)
  1. LEVOTHYROX NF [Suspect]
     Active Substance: LEVOTHYROXINE SODIUM
     Dates: start: 201708, end: 2017
  2. EUTHYROX [Suspect]
     Active Substance: LEVOTHYROXINE SODIUM
     Indication: HYPOTHYROIDISM
  3. LEVOTHYROX NF [Suspect]
     Active Substance: LEVOTHYROXINE SODIUM
     Dates: start: 201704

REACTIONS (24)
  - Disturbance in attention [None]
  - Alopecia [None]
  - Hallucination [None]
  - Muscle spasms [None]
  - Arthralgia [None]
  - Gastrointestinal disorder [None]
  - Vertigo [None]
  - Anxiety [None]
  - Asthenia [None]
  - Abdominal distension [None]
  - Diarrhoea [None]
  - Nausea [None]
  - Headache [None]
  - Loss of personal independence in daily activities [None]
  - Visual impairment [None]
  - Maternal exposure during pregnancy [Recovered/Resolved]
  - Abortion spontaneous [None]
  - Constipation [None]
  - Skin disorder [None]
  - Impaired quality of life [None]
  - Weight increased [None]
  - Sleep disorder [None]
  - Blood thyroid stimulating hormone abnormal [None]
  - Nightmare [None]

NARRATIVE: CASE EVENT DATE: 2017
